FAERS Safety Report 17141555 (Version 3)
Quarter: 2020Q4

REPORT INFORMATION
  Report Type: Report from Study
  Country: JP (occurrence: JP)
  Receive Date: 20191211
  Receipt Date: 20201117
  Transmission Date: 20210113
  Serious: Yes (Death, Other)
  Sender: FDA-Public Use
  Company Number: JP-009507513-1912JPN000419J

PATIENT
  Age: 80 Year
  Sex: Male
  Weight: 82 kg

DRUGS (4)
  1. FUROSEMIDE. [Concomitant]
     Active Substance: FUROSEMIDE
     Dosage: 2 MILLILITER,UNK
     Route: 051
     Dates: end: 20190830
  2. DEXART [Concomitant]
     Active Substance: DEXAMETHASONE SODIUM PHOSPHATE
     Dosage: 2 MILLILITER,UNK
     Route: 051
     Dates: end: 20190924
  3. PEMBROLIZUMAB. [Suspect]
     Active Substance: PEMBROLIZUMAB
     Indication: HODGKIN^S DISEASE MIXED CELLULARITY STAGE III
     Dosage: 200 MILLIGRAM, Q3W
     Route: 041
     Dates: start: 20190716, end: 20190826
  4. PREDONINE [Concomitant]
     Active Substance: PREDNISOLONE
     Indication: HODGKIN^S DISEASE MIXED CELLULARITY STAGE III
     Dosage: 10 MILLIGRAM,UNK
     Route: 048
     Dates: end: 20190902

REACTIONS (2)
  - Off label use [Unknown]
  - Malignant neoplasm progression [Fatal]

NARRATIVE: CASE EVENT DATE: 2019
